FAERS Safety Report 8645993 (Version 5)
Quarter: 2013Q2

REPORT INFORMATION
  Report Type: Spontaneous
  Country: US (occurrence: US)
  Receive Date: 20120702
  Receipt Date: 20130625
  Transmission Date: 20140414
  Serious: Yes (Hospitalization, Disabling, Other)
  Sender: FDA-Public Use
  Company Number: US-009507513-1206USA04944

PATIENT
  Sex: Female
  Weight: 102.4 kg

DRUGS (5)
  1. FOSAMAX [Suspect]
     Indication: OSTEOPOROSIS
     Dosage: 70 MG QW
     Route: 048
  2. FOSAMAX [Suspect]
     Indication: OSTEOPENIA
  3. FOSAMAX [Suspect]
     Indication: OSTEOPOROSIS
     Dosage: 70 MG, QW
     Route: 048
  4. FOSAMAX [Suspect]
     Indication: OSTEOPENIA
  5. VITAMINS (UNSPECIFIED) [Concomitant]
     Dosage: UNK, QD
     Route: 048
     Dates: start: 1970

REACTIONS (61)
  - Femur fracture [Not Recovered/Not Resolved]
  - Intramedullary rod insertion [Unknown]
  - Femur fracture [Not Recovered/Not Resolved]
  - Low turnover osteopathy [Not Recovered/Not Resolved]
  - Osteoporosis [Not Recovered/Not Resolved]
  - Stress fracture [Not Recovered/Not Resolved]
  - Breast cancer [Unknown]
  - Breast cancer [Unknown]
  - Mastectomy [Unknown]
  - Uterine cancer [Unknown]
  - Adjustment disorder with anxiety [Not Recovered/Not Resolved]
  - Post-traumatic stress disorder [Unknown]
  - Encephalopathy [Unknown]
  - Knee arthroplasty [Unknown]
  - Abdominal hernia [Unknown]
  - Joint effusion [Unknown]
  - Decubitus ulcer [Recovered/Resolved]
  - Cardiac murmur [Unknown]
  - Fall [Unknown]
  - Dementia [Unknown]
  - Hyperlipidaemia [Unknown]
  - Hypoglycaemia [Unknown]
  - Essential hypertension [Unknown]
  - Essential tremor [Unknown]
  - Hypothyroidism [Unknown]
  - Lymphoedema [Not Recovered/Not Resolved]
  - Cataract [Unknown]
  - Osteoarthritis [Unknown]
  - Agitation [Unknown]
  - Insomnia [Unknown]
  - Dysphonia [Unknown]
  - Upper-airway cough syndrome [Unknown]
  - Abasia [Unknown]
  - Pain [Unknown]
  - Muscle strain [Unknown]
  - Hysterectomy [Unknown]
  - Salpingo-oophorectomy bilateral [Unknown]
  - Cataract operation [Unknown]
  - Ear pain [Recovered/Resolved]
  - Eye operation [Unknown]
  - Depression [Recovered/Resolved]
  - Venous insufficiency [Unknown]
  - Incontinence [Unknown]
  - Drug dispensing error [Unknown]
  - Cellulitis [Recovering/Resolving]
  - Endodontic procedure [Unknown]
  - Fall [Unknown]
  - Cardiac murmur [Unknown]
  - Osteoarthritis [Unknown]
  - Urinary tract infection [Unknown]
  - Tooth extraction [Unknown]
  - Polyarthritis [Unknown]
  - Balance disorder [Unknown]
  - Contusion [Unknown]
  - Arthralgia [Unknown]
  - Arthralgia [Unknown]
  - Musculoskeletal chest pain [Unknown]
  - Oedema peripheral [Not Recovered/Not Resolved]
  - Constipation [Not Recovered/Not Resolved]
  - Gastrooesophageal reflux disease [Unknown]
  - Myalgia [Unknown]
